FAERS Safety Report 24987809 (Version 3)
Quarter: 2025Q2

REPORT INFORMATION
  Report Type: Spontaneous
  Country: JP (occurrence: JP)
  Receive Date: 20250219
  Receipt Date: 20250422
  Transmission Date: 20250716
  Serious: No
  Sender: ARDELYX
  Company Number: JP-ARDELYX-2025ARDX001002

PATIENT
  Age: 66 Year
  Sex: Male

DRUGS (1)
  1. TENAPANOR HYDROCHLORIDE [Suspect]
     Active Substance: TENAPANOR HYDROCHLORIDE
     Indication: Hyperphosphataemia
     Route: 048

REACTIONS (1)
  - No adverse event [Unknown]
